FAERS Safety Report 4597231-7 (Version None)
Quarter: 2005Q1

REPORT INFORMATION
  Report Type: 
  Country: None (occurrence: None)
  Receive Date: 20050303
  Receipt Date: 20050221
  Transmission Date: 20050727
  Serious: Yes (Hospitalization)
  Sender: FDA-Public Use
  Company Number: 200510591JP

PATIENT
  Age: 60 Year
  Sex: Male

DRUGS (1)
  1. TAXOTERE [Suspect]
     Indication: NON-SMALL CELL LUNG CANCER
     Route: 041

REACTIONS (2)
  - OEDEMA [None]
  - PERICARDITIS [None]
